FAERS Safety Report 5446629-3 (Version None)
Quarter: 2007Q3

REPORT INFORMATION
  Report Type: 
  Country: None (occurrence: None)
  Receive Date: 20070907
  Receipt Date: 20070827
  Transmission Date: 20080115
  Serious: Yes (Hospitalization)
  Sender: FDA-Public Use
  Company Number: CZ-PFIZER INC-2007065328

PATIENT
  Age: 23 Year
  Sex: Female

DRUGS (7)
  1. METHYLPREDNISOLONE 16MG TAB [Suspect]
  2. PREDNISONE [Concomitant]
  3. AZATHIOPRINE [Concomitant]
  4. METHOTREXATE [Concomitant]
  5. CYCLOSPORINE [Concomitant]
  6. LEFLUNOMIDE [Concomitant]
  7. IMMUNOGLOBULINS [Concomitant]

REACTIONS (2)
  - ARTHRALGIA [None]
  - OEDEMA [None]
